FAERS Safety Report 11413070 (Version 1)
Quarter: 2015Q3

REPORT INFORMATION
  Report Type: Spontaneous
  Country: US (occurrence: US)
  Receive Date: 20150821
  Receipt Date: 20150821
  Transmission Date: 20151125
  Serious: No
  Sender: FDA-Public Use
  Company Number: US-ELI_LILLY_AND_COMPANY-US201208003418

PATIENT
  Sex: Male

DRUGS (2)
  1. HUMULIN R [Suspect]
     Active Substance: INSULIN HUMAN
     Indication: DIABETES MELLITUS
     Dosage: 7 U, BID
     Route: 058
     Dates: start: 20120508
  2. HUMULIN R [Suspect]
     Active Substance: INSULIN HUMAN

REACTIONS (2)
  - Drug effect decreased [Not Recovered/Not Resolved]
  - Expired product administered [Recovered/Resolved]
